FAERS Safety Report 9877014 (Version 1)
Quarter: 2014Q1

REPORT INFORMATION
  Report Type: Spontaneous
  Country: US (occurrence: US)
  Receive Date: 20140206
  Receipt Date: 20140206
  Transmission Date: 20141002
  Serious: No
  Sender: FDA-Public Use
  Company Number: US-PFIZER INC-2014032536

PATIENT
  Sex: Male
  Weight: 68 kg

DRUGS (1)
  1. SUTENT [Suspect]
     Dosage: 50 MG, UNK
     Dates: start: 20131228, end: 20140115

REACTIONS (4)
  - Platelet count decreased [Unknown]
  - White blood cell count decreased [Unknown]
  - Fatigue [Unknown]
  - Asthenia [Unknown]
